FAERS Safety Report 6264435-7 (Version None)
Quarter: 2009Q3

REPORT INFORMATION
  Report Type: 
  Country: None (occurrence: None)
  Receive Date: 20090708
  Receipt Date: 20090626
  Transmission Date: 20100115
  Serious: Yes (Death, Hospitalization)
  Sender: FDA-Public Use
  Company Number: OMPQ-NO-0906S-0471

PATIENT
  Age: 45 Year
  Sex: Female

DRUGS (1)
  1. OMNIPAQUE 300 [Suspect]
     Indication: BLADDER MASS
     Dosage: 100 ML, SINGLE DOSE, I.V.
     Route: 042
     Dates: start: 20090501, end: 20090501

REACTIONS (3)
  - ANAPHYLACTOID SHOCK [None]
  - COMA [None]
  - CONTRAST MEDIA REACTION [None]
